FAERS Safety Report 26084355 (Version 1)
Quarter: 2025Q4

REPORT INFORMATION
  Report Type: Spontaneous
  Country: US (occurrence: None)
  Receive Date: 20251124
  Receipt Date: 20251124
  Transmission Date: 20260118
  Serious: No
  Sender: AMERICAN REGENT
  Company Number: US-AMERICAN REGENT INC-2024004927

PATIENT
  Sex: Female

DRUGS (2)
  1. VENOFER [Suspect]
     Active Substance: IRON SUCROSE
     Indication: Product used for unknown indication
     Dosage: 100 MG/5 ML IN 100 ML NORMAL SALINE
     Dates: start: 20241114, end: 20241114
  2. VENOFER [Suspect]
     Active Substance: IRON SUCROSE
     Dosage: 100 MG/5 ML IN 100 ML NORMAL SALINE
     Dates: start: 20241121, end: 20241121

REACTIONS (3)
  - Injection site pain [Recovered/Resolved]
  - Recalled product administered [Unknown]
  - Product quality issue [Unknown]

NARRATIVE: CASE EVENT DATE: 20241114
